FAERS Safety Report 5458463-9 (Version None)
Quarter: 2007Q3

REPORT INFORMATION
  Report Type: 
  Country: None (occurrence: None)
  Receive Date: 20070919
  Receipt Date: 20070330
  Transmission Date: 20080115
  Serious: No
  Sender: FDA-Public Use
  Company Number: US-ASTRAZENECA-2007UW06450

PATIENT
  Age: 44 Year
  Sex: Female
  Weight: 65.8 kg

DRUGS (1)
  1. SEROQUEL [Suspect]
     Indication: DEPRESSION
     Route: 048
     Dates: start: 20030101

REACTIONS (4)
  - CRYING [None]
  - DEPRESSED MOOD [None]
  - DRUG EXPOSURE DURING PREGNANCY [None]
  - EMOTIONAL DISORDER [None]
